FAERS Safety Report 25661858 (Version 1)
Quarter: 2025Q3

REPORT INFORMATION
  Report Type: Spontaneous
  Country: BR (occurrence: BR)
  Receive Date: 20250809
  Receipt Date: 20250809
  Transmission Date: 20251021
  Serious: Yes (Other)
  Sender: TEVA
  Company Number: BR-TEVA-VS-3342372

PATIENT
  Age: 16 Year
  Sex: Female
  Weight: 75 kg

DRUGS (3)
  1. AJOVY [Suspect]
     Active Substance: FREMANEZUMAB-VFRM
     Indication: Migraine with aura
     Route: 058
     Dates: start: 20250614, end: 20250614
  2. AJOVY [Suspect]
     Active Substance: FREMANEZUMAB-VFRM
     Indication: Migraine with aura
     Route: 058
     Dates: start: 20250714, end: 20250714
  3. AMITRIPTYLINE [Concomitant]
     Active Substance: AMITRIPTYLINE
     Indication: Migraine
     Route: 065

REACTIONS (5)
  - Blindness transient [Unknown]
  - Product prescribing issue [Unknown]
  - Drug effect less than expected [Unknown]
  - Photopsia [Unknown]
  - Product use issue [Unknown]

NARRATIVE: CASE EVENT DATE: 20250101
